FAERS Safety Report 21746831 (Version 2)
Quarter: 2022Q4

REPORT INFORMATION
  Report Type: Spontaneous
  Country: US (occurrence: US)
  Receive Date: 20221219
  Receipt Date: 20221221
  Transmission Date: 20230113
  Serious: No
  Sender: FDA-Public Use
  Company Number: US-SA-SAC20221216000152

PATIENT
  Sex: Female

DRUGS (1)
  1. DUPIXENT [Suspect]
     Active Substance: DUPILUMAB
     Indication: Dermatitis atopic
     Dosage: 300 MG, QOW
     Route: 058
     Dates: start: 202203

REACTIONS (7)
  - Pain of skin [Unknown]
  - Skin irritation [Unknown]
  - Eye pain [Unknown]
  - Eye irritation [Unknown]
  - Eczema [Unknown]
  - Hypersensitivity [Unknown]
  - Drug ineffective [Unknown]
